FAERS Safety Report 8198708-8 (Version None)
Quarter: 2012Q1

REPORT INFORMATION
  Report Type: 
  Country: None (occurrence: None)
  Receive Date: 20120309
  Receipt Date: 20120227
  Transmission Date: 20120608
  Serious: Yes (Hospitalization)
  Sender: FDA-Public Use
  Company Number: US-ELI_LILLY_AND_COMPANY-US201202008335

PATIENT
  Age: 62 Year
  Sex: Male

DRUGS (3)
  1. PRASUGREL HYDROCHLORIDE [Suspect]
     Dosage: DESENSITIZATION EVERY 30 MINUTES FOR 7 HOURS
  2. PRASUGREL HYDROCHLORIDE [Suspect]
     Dosage: 60 MG, LOADING DOSE
  3. PRASUGREL HYDROCHLORIDE [Suspect]
     Dosage: 10 MG, QD

REACTIONS (2)
  - ANGINA PECTORIS [None]
  - HYPERSENSITIVITY [None]
